FAERS Safety Report 5619927-8 (Version None)
Quarter: 2008Q1

REPORT INFORMATION
  Report Type: 
  Country: None (occurrence: None)
  Receive Date: 20080208
  Receipt Date: 20070917
  Transmission Date: 20080703
  Serious: No
  Sender: FDA-Public Use
  Company Number: US-ABBOTT-07P-163-0417239-00

PATIENT
  Age: 63 Year
  Sex: Male

DRUGS (6)
  1. VICODIN [Suspect]
     Indication: OSTEOARTHRITIS
     Dates: start: 20070801
  2. BLOOD PRESSURE PILL [Concomitant]
     Indication: HYPERTENSION
     Route: 048
  3. HIGH CHOLESTEROL PILL [Concomitant]
     Indication: DRUG USE FOR UNKNOWN INDICATION
     Route: 048
  4. PILL FOR LEG CRAMPS [Concomitant]
     Indication: MUSCLE SPASMS
     Route: 048
  5. NAPROXEN SODIUM [Concomitant]
     Indication: OSTEOARTHRITIS
     Route: 048
  6. MOVE FREE PILL [Concomitant]
     Indication: DRUG USE FOR UNKNOWN INDICATION
     Route: 048

REACTIONS (1)
  - DRUG INEFFECTIVE [None]
